FAERS Safety Report 8033609-7 (Version None)
Quarter: 2011Q4

REPORT INFORMATION
  Report Type: 
  Country: None (occurrence: None)
  Receive Date: 20111202
  Receipt Date: 20110310
  Transmission Date: 20120403
  Serious: Yes (Disabling)
  Sender: FDA-Public Use
  Company Number: WAES 1103USA01554

PATIENT
  Age: 59 Year
  Sex: Female
  Weight: 48.5349 kg

DRUGS (3)
  1. FOSAMAX [Suspect]
     Indication: OSTEOPOROSIS
     Dosage: 35 MG/UNK/PO 70 MG/WKY/PO
     Route: 048
     Dates: start: 20030711
  2. FOSAMAX [Suspect]
     Indication: OSTEOPOROSIS
     Dosage: 35 MG/UNK/PO 70 MG/WKY/PO
     Route: 048
     Dates: start: 20030902, end: 20090301
  3. FOSAMAX [Suspect]
     Indication: OSTEOPOROSIS
     Dosage: 35 MG/UNK/PO 70 MG/WKY/PO
     Route: 048
     Dates: start: 20090313, end: 20100324

REACTIONS (36)
  - ABSCESS [None]
  - ADVERSE DRUG REACTION [None]
  - CONSTIPATION [None]
  - DIARRHOEA [None]
  - DIVERTICULUM [None]
  - SINUSITIS [None]
  - GINGIVAL BLEEDING [None]
  - HAEMORRHOIDS [None]
  - ANAL SPHINCTER ATONY [None]
  - DEPRESSION [None]
  - PAIN IN JAW [None]
  - DIVERTICULITIS [None]
  - DIARRHOEA HAEMORRHAGIC [None]
  - FATIGUE [None]
  - EXOSTOSIS [None]
  - MALNUTRITION [None]
  - PHOTOSENSITIVITY REACTION [None]
  - BONE LOSS [None]
  - PATELLOFEMORAL PAIN SYNDROME [None]
  - DENTAL CARIES [None]
  - TOOTH DISORDER [None]
  - HYPERLIPIDAEMIA [None]
  - CHRONIC OBSTRUCTIVE PULMONARY DISEASE [None]
  - COLONIC POLYP [None]
  - FISTULA [None]
  - TENDONITIS [None]
  - PERIODONTAL DISEASE [None]
  - HYPERCALCAEMIA [None]
  - BRONCHITIS [None]
  - COUGH [None]
  - ANXIETY [None]
  - OSTEONECROSIS OF JAW [None]
  - ABDOMINAL DISCOMFORT [None]
  - EDENTULOUS [None]
  - WEIGHT DECREASED [None]
  - POOR QUALITY SLEEP [None]
